FAERS Safety Report 21396520 (Version 3)
Quarter: 2022Q4

REPORT INFORMATION
  Report Type: Report from Study
  Country: US (occurrence: US)
  Receive Date: 20220930
  Receipt Date: 20221229
  Transmission Date: 20230113
  Serious: No
  Sender: FDA-Public Use
  Company Number: US-BIOVITRUM-2022US11003

PATIENT
  Age: 4 Year
  Sex: Male

DRUGS (3)
  1. KINERET [Suspect]
     Active Substance: ANAKINRA
     Indication: Cardiomyopathy
     Dates: start: 20220527
  2. KINERET [Suspect]
     Active Substance: ANAKINRA
     Dates: start: 20221104
  3. KINERET [Suspect]
     Active Substance: ANAKINRA
     Dates: start: 20220527

REACTIONS (4)
  - Crying [Unknown]
  - Injection site bruising [Unknown]
  - Product dose omission issue [Unknown]
  - Off label use [Not Recovered/Not Resolved]

NARRATIVE: CASE EVENT DATE: 20220527
